FAERS Safety Report 21009566 (Version 1)
Quarter: 2022Q2

REPORT INFORMATION
  Report Type: Spontaneous
  Country: US (occurrence: US)
  Receive Date: 20220627
  Receipt Date: 20220627
  Transmission Date: 20220721
  Serious: Yes (Other)
  Sender: FDA-Public Use
  Company Number: US-TORRENT-00011913

PATIENT
  Age: 31 Year
  Sex: Female

DRUGS (2)
  1. PANTOPRAZOLE [Interacting]
     Active Substance: PANTOPRAZOLE
     Indication: Mucormycosis
     Dosage: 80 MG TWICE DAILY
     Route: 065
  2. AMPHOTERICIN B [Interacting]
     Active Substance: AMPHOTERICIN B
     Indication: Mucormycosis
     Dosage: UNKNOWN
     Route: 065

REACTIONS (2)
  - Drug interaction [Unknown]
  - Blood bilirubin increased [Unknown]
